FAERS Safety Report 7592548-6 (Version None)
Quarter: 2011Q3

REPORT INFORMATION
  Report Type: 
  Country: None (occurrence: None)
  Receive Date: 20110706
  Receipt Date: 20110701
  Transmission Date: 20111222
  Serious: Yes (Hospitalization, Other)
  Sender: FDA-Public Use
  Company Number: US-PFIZER INC-2011148053

PATIENT
  Sex: Female
  Weight: 46.712 kg

DRUGS (6)
  1. ALPRAZOLAM [Suspect]
     Indication: OBSESSIVE-COMPULSIVE DISORDER
  2. COMPAZINE [Suspect]
     Indication: ABDOMINAL DISCOMFORT
     Dosage: 10 MG, DAILY
  3. TIGAN [Concomitant]
     Indication: ABDOMINAL DISCOMFORT
     Dosage: UNK
  4. ALPRAZOLAM [Suspect]
     Indication: PANIC ATTACK
  5. ALPRAZOLAM [Suspect]
     Indication: ANXIETY
     Dosage: 0.5 MG, UNK
  6. COMPAZINE [Suspect]
     Indication: VOMITING

REACTIONS (8)
  - ANAPHYLACTIC SHOCK [None]
  - CONVULSION [None]
  - ARTHROPATHY [None]
  - HYPOAESTHESIA [None]
  - BENIGN BREAST NEOPLASM [None]
  - JOINT RANGE OF MOTION DECREASED [None]
  - TREMOR [None]
  - NERVOUSNESS [None]
